FAERS Safety Report 10308716 (Version 1)
Quarter: 2014Q3

REPORT INFORMATION
  Report Type: Spontaneous
  Country: US (occurrence: US)
  Receive Date: 20140716
  Receipt Date: 20140716
  Transmission Date: 20150326
  Serious: Yes (Hospitalization)
  Sender: FDA-Public Use
  Company Number: US-TEVA-493193USA

PATIENT
  Age: 47 Year
  Sex: Female

DRUGS (10)
  1. AUGMENTIN [Concomitant]
     Active Substance: AMOXICILLIN\CLAVULANATE POTASSIUM
     Indication: DYSURIA
     Dosage: 1750 MILLIGRAM DAILY;
     Route: 048
  2. PURINETHOL [Suspect]
     Active Substance: MERCAPTOPURINE
     Indication: AUTOIMMUNE HEPATITIS
     Dosage: 50 MILLIGRAM DAILY;
     Route: 048
     Dates: end: 201404
  3. PURINETHOL [Suspect]
     Active Substance: MERCAPTOPURINE
     Dosage: 100 MILLIGRAM DAILY;
     Route: 048
     Dates: start: 201404
  4. OLYSIO [Suspect]
     Active Substance: SIMEPREVIR
     Indication: HEPATITIS C
     Dosage: 150 MILLIGRAM DAILY;
     Route: 048
     Dates: start: 201402, end: 201404
  5. ZOFRAN [Concomitant]
     Active Substance: ONDANSETRON HYDROCHLORIDE
     Indication: PRODUCT USED FOR UNKNOWN INDICATION
     Route: 065
  6. SOVALDI [Suspect]
     Active Substance: SOFOSBUVIR
     Indication: HEPATITIS C
     Dosage: 400 MILLIGRAM DAILY;
     Route: 048
     Dates: start: 201402
  7. RIBAVIRIN. [Suspect]
     Active Substance: RIBAVIRIN
     Indication: HEPATITIS C
     Dates: start: 201402
  8. ENTOCORT [Concomitant]
     Active Substance: BUDESONIDE
     Dosage: 3 MILLIGRAM DAILY;
     Route: 048
  9. CEFEPIME [Concomitant]
     Active Substance: CEFEPIME\CEFEPIME HYDROCHLORIDE
     Indication: PRODUCT USED FOR UNKNOWN INDICATION
     Dosage: 4 GRAM DAILY;
     Route: 042
     Dates: start: 20140527
  10. ENTOCORT [Concomitant]
     Active Substance: BUDESONIDE
     Dosage: 9 MILLIGRAM DAILY;
     Dates: start: 201404

REACTIONS (17)
  - Ocular icterus [Recovered/Resolved]
  - Diarrhoea [Recovering/Resolving]
  - Drug-induced liver injury [Recovered/Resolved]
  - Autoimmune hepatitis [Recovered/Resolved]
  - Pyrexia [Recovered/Resolved]
  - Off label use [Recovered/Resolved]
  - Fatigue [Recovering/Resolving]
  - Local swelling [Recovering/Resolving]
  - Dysuria [Recovering/Resolving]
  - Cough [Unknown]
  - Urinary tract infection [Recovered/Resolved]
  - Pruritus generalised [Recovering/Resolving]
  - Jaundice [Recovered/Resolved]
  - Tachycardia [Recovered/Resolved]
  - Subacute hepatic failure [Recovered/Resolved]
  - Nausea [Recovering/Resolving]
  - Decreased appetite [Recovering/Resolving]

NARRATIVE: CASE EVENT DATE: 201404
